FAERS Safety Report 23028298 (Version 3)
Quarter: 2023Q4

REPORT INFORMATION
  Report Type: Report from Study
  Country: AR (occurrence: AR)
  Receive Date: 20231004
  Receipt Date: 20231110
  Transmission Date: 20240110
  Serious: Yes (Hospitalization)
  Sender: FDA-Public Use
  Company Number: AR-PFIZER INC-202300307981

PATIENT
  Age: 57 Year
  Sex: Male
  Weight: 97 kg

DRUGS (2)
  1. ELRANATAMAB [Suspect]
     Active Substance: ELRANATAMAB
     Indication: Plasma cell myeloma
     Dosage: 12 MG, WEEKLY
     Route: 058
     Dates: start: 20230919, end: 20230919
  2. MORPHINE [Concomitant]
     Active Substance: MORPHINE
     Indication: Plasma cell myeloma
     Dosage: 2 %, AS NEEDED
     Route: 048
     Dates: start: 20210325

REACTIONS (1)
  - Back pain [Recovered/Resolved]

NARRATIVE: CASE EVENT DATE: 20230921
